FAERS Safety Report 9461362 (Version 1)
Quarter: 2013Q3

REPORT INFORMATION
  Report Type: Spontaneous
  Country: US (occurrence: US)
  Receive Date: 20130816
  Receipt Date: 20130816
  Transmission Date: 20140515
  Serious: Yes (Hospitalization)
  Sender: FDA-Public Use
  Company Number: US-ELI_LILLY_AND_COMPANY-US201308003153

PATIENT
  Age: 41 Year
  Sex: Female
  Weight: 60.09 kg

DRUGS (11)
  1. ADCIRCA [Suspect]
     Indication: PULMONARY ARTERIAL HYPERTENSION
     Dosage: 20 MG, UNK
     Dates: start: 20130317
  2. REMODULIN [Suspect]
     Dosage: UNK
     Route: 042
     Dates: start: 20130414, end: 20130627
  3. REMODULIN [Suspect]
     Dosage: UNK
     Route: 058
     Dates: start: 20130628
  4. COLCHICINE [Concomitant]
     Dosage: 1.2 MG, UNK
     Route: 048
     Dates: start: 20130411, end: 20130627
  5. POTASSIUM CHLORIDE [Concomitant]
     Dosage: UNK
     Dates: start: 20120116
  6. SPIRONOLACTONE [Concomitant]
     Dosage: UNK
     Dates: start: 20130319
  7. TORSEMIDE [Concomitant]
     Dosage: UNK
     Dates: start: 20130318
  8. DICYCLOMINE [Concomitant]
     Dosage: UNK
     Dates: start: 20130317, end: 20130627
  9. ESOMEPRAZOLE [Concomitant]
     Dosage: UNK
     Dates: start: 20130318
  10. ALBUTEROL [Concomitant]
     Dosage: UNK
     Dates: start: 20130317
  11. ESCITALOPRAM [Concomitant]
     Dosage: UNK
     Dates: start: 20130318

REACTIONS (1)
  - Administration site infection [Recovered/Resolved]
